FAERS Safety Report 24231706 (Version 1)
Quarter: 2024Q3

REPORT INFORMATION
  Report Type: Report from Study
  Country: US (occurrence: US)
  Receive Date: 20240821
  Receipt Date: 20240821
  Transmission Date: 20241017
  Serious: Yes (Disabling)
  Sender: GILEAD
  Company Number: US-GILEAD-2024-0684724

PATIENT
  Sex: Female

DRUGS (2)
  1. AMBRISENTAN [Suspect]
     Active Substance: AMBRISENTAN
     Indication: Pulmonary arterial hypertension
     Dosage: 1 DOSAGE FORM, QD
     Route: 048
  2. SILDENAFIL [Concomitant]
     Active Substance: SILDENAFIL

REACTIONS (4)
  - Frequent bowel movements [Unknown]
  - Nausea [Unknown]
  - Flushing [Unknown]
  - Headache [Unknown]
